FAERS Safety Report 5082555-X (Version None)
Quarter: 2006Q3

REPORT INFORMATION
  Report Type: 
  Country: None (occurrence: None)
  Receive Date: 20060817
  Receipt Date: 20060807
  Transmission Date: 20061208
  Serious: Yes (Hospitalization)
  Sender: FDA-Public Use
  Company Number: GB-GLAXOSMITHKLINE-B0433261A

PATIENT
  Sex: Female

DRUGS (1)
  1. AQUAFRESH EXTREME CLEAN WHITENING TOOTHPASTE [Suspect]
     Indication: DENTAL CLEANING
     Dosage: 1APP PER DAY
     Dates: start: 20060730, end: 20060730

REACTIONS (4)
  - DYSGEUSIA [None]
  - FACIAL PALSY [None]
  - FACIAL SPASM [None]
  - LACRIMATION INCREASED [None]
